FAERS Safety Report 12513624 (Version 1)
Quarter: 2016Q2

REPORT INFORMATION
  Report Type: Spontaneous
  Country: US (occurrence: None)
  Receive Date: 20160629
  Receipt Date: 20160629
  Transmission Date: 20160815
  Serious: No
  Sender: FDA-Public Use
  Company Number: None

PATIENT
  Age: 60 Year
  Sex: Male

DRUGS (15)
  1. MILK OF MAG [Concomitant]
  2. OXY [Concomitant]
     Active Substance: BENZOYL PEROXIDE
  3. DSS [Concomitant]
     Active Substance: DEXTRAN SULFATE SODIUM SALT
  4. SERTRALINE [Concomitant]
     Active Substance: SERTRALINE HYDROCHLORIDE
  5. ACETAMINOPHEN. [Concomitant]
     Active Substance: ACETAMINOPHEN
  6. TRAZODONE [Concomitant]
     Active Substance: TRAZODONE HYDROCHLORIDE
  7. SENNA [Concomitant]
     Active Substance: SENNA LEAF\SENNOSIDES\SENNOSIDES A AND B
  8. OXYCODONE [Suspect]
     Active Substance: OXYCODONE
     Route: 048
  9. BENZTROPINE [Concomitant]
     Active Substance: BENZTROPINE
  10. MEMANTINE. [Concomitant]
     Active Substance: MEMANTINE
  11. PSYLLIUM [Concomitant]
     Active Substance: PLANTAGO SEED
  12. BISACODYL. [Concomitant]
     Active Substance: BISACODYL
  13. CLONAZ [Concomitant]
  14. DRONABINOL. [Concomitant]
     Active Substance: DRONABINOL
  15. FENTANYL. [Concomitant]
     Active Substance: FENTANYL

REACTIONS (1)
  - Pruritus [None]

NARRATIVE: CASE EVENT DATE: 20150325
